FAERS Safety Report 11645032 (Version 3)
Quarter: 2015Q4

REPORT INFORMATION
  Report Type: Spontaneous
  Country: US (occurrence: US)
  Receive Date: 20151020
  Receipt Date: 20151109
  Transmission Date: 20160304
  Serious: No
  Sender: FDA-Public Use
  Company Number: US-HORIZON-RAV-0093-2015

PATIENT
  Age: 23 Year
  Sex: Male

DRUGS (15)
  1. DICLOFENAC POT [Concomitant]
  2. TOPAMAX [Concomitant]
     Active Substance: TOPIRAMATE
  3. RAVICTI [Suspect]
     Active Substance: GLYCEROL PHENYLBUTYRATE
     Indication: ORNITHINE TRANSCARBAMOYLASE DEFICIENCY
     Dosage: 7 ML TID
  4. LISINOPRIL. [Concomitant]
     Active Substance: LISINOPRIL
  5. EPIPEN [Concomitant]
     Active Substance: EPINEPHRINE
  6. LORATIDINE [Concomitant]
     Active Substance: LORATADINE
  7. NAPROXEN. [Concomitant]
     Active Substance: NAPROXEN
  8. VENTOLIN [Concomitant]
     Active Substance: ALBUTEROL SULFATE
  9. ALBUTEROL NEBULIZER [Concomitant]
     Active Substance: ALBUTEROL
  10. NOVOLOG [Concomitant]
     Active Substance: INSULIN ASPART
  11. LANTUS [Concomitant]
     Active Substance: INSULIN GLARGINE
  12. SIMVASTATIN. [Concomitant]
     Active Substance: SIMVASTATIN
  13. ASMANEX INHALER [Concomitant]
  14. VYVANSE [Concomitant]
     Active Substance: LISDEXAMFETAMINE DIMESYLATE
  15. OMEPRAZOLE DR [Concomitant]
     Active Substance: OMEPRAZOLE

REACTIONS (1)
  - Blood calcium increased [Unknown]

NARRATIVE: CASE EVENT DATE: 201506
